FAERS Safety Report 10078705 (Version 1)
Quarter: 2014Q2

REPORT INFORMATION
  Report Type: Report from Study
  Country: US (occurrence: US)
  Receive Date: 20140415
  Receipt Date: 20140415
  Transmission Date: 20141212
  Serious: Yes (Other)
  Sender: FDA-Public Use
  Company Number: US-ROCHE-1381195

PATIENT
  Age: 65 Year
  Sex: Female
  Weight: 84.9 kg

DRUGS (16)
  1. ACTEMRA [Suspect]
     Indication: RHEUMATOID ARTHRITIS
     Route: 058
     Dates: start: 20140321
  2. ACTEMRA [Suspect]
     Route: 058
     Dates: start: 201401
  3. CLONAZEPAM [Suspect]
     Indication: PRODUCT USED FOR UNKNOWN INDICATION
     Route: 065
  4. SYNTHROID [Concomitant]
     Route: 065
     Dates: start: 201403
  5. ABILIFY [Concomitant]
     Indication: STRESS
     Route: 065
     Dates: start: 20140324
  6. SAVELLA [Concomitant]
     Indication: FIBROMYALGIA
     Route: 065
  7. CELEBREX [Concomitant]
     Route: 065
  8. TRAZODONE [Concomitant]
     Route: 065
  9. SULFASALAZINE [Concomitant]
     Indication: RHEUMATOID ARTHRITIS
     Route: 065
  10. ALIGN [Concomitant]
  11. CYMBALTA [Concomitant]
     Route: 065
     Dates: end: 201401
  12. FOLIC ACID [Concomitant]
     Indication: ALOPECIA
     Route: 065
  13. RANITIDINE [Concomitant]
     Indication: GASTROOESOPHAGEAL REFLUX DISEASE
     Route: 065
  14. TRIAMTERENE [Concomitant]
     Route: 065
  15. CREAM (NAME UNKNOWN) [Concomitant]
     Indication: RASH
  16. ASA [Concomitant]
     Route: 048

REACTIONS (6)
  - Hypothyroidism [Not Recovered/Not Resolved]
  - Hypercholesterolaemia [Unknown]
  - Haemorrhage [Not Recovered/Not Resolved]
  - Drug dose omission [Unknown]
  - Contusion [Unknown]
  - Rash [Recovering/Resolving]
